FAERS Safety Report 4266860-2 (Version None)
Quarter: 2004Q1

REPORT INFORMATION
  Report Type: 
  Country: None (occurrence: None)
  Receive Date: 20040108
  Receipt Date: 20031229
  Transmission Date: 20041129
  Serious: Yes (Hospitalization)
  Sender: FDA-Public Use
  Company Number: WAES 0312USA02560

PATIENT
  Age: 32 Year
  Sex: Male

DRUGS (4)
  1. FLUTICASONE PROPIONATE [Concomitant]
  2. SINGULAIR [Suspect]
     Route: 048
     Dates: end: 20031218
  3. SALMETEROL XINAFOATE [Concomitant]
  4. THEOPHYLLINE [Concomitant]

REACTIONS (1)
  - EOSINOPHILIC PNEUMONIA [None]
